FAERS Safety Report 19814265 (Version 1)
Quarter: 2021Q3

REPORT INFORMATION
  Report Type: Spontaneous
  Country: AE (occurrence: AE)
  Receive Date: 20210909
  Receipt Date: 20210909
  Transmission Date: 20211014
  Serious: Yes (Hospitalization, Other)
  Sender: FDA-Public Use
  Company Number: AE-GLAXOSMITHKLINE-AE2021EME189651

PATIENT
  Age: 26 Year
  Sex: Male

DRUGS (1)
  1. SOTROVIMAB FOR COVID?19 BY INTERIM ORDER/EMERGENCY USE AUTHORIZATION [Suspect]
     Active Substance: SOTROVIMAB
     Indication: COVID-19
     Dosage: 500 MG, Z (SINGLE)
     Route: 042

REACTIONS (3)
  - Rash [Unknown]
  - Swelling face [Unknown]
  - Anaphylactic shock [Unknown]
